FAERS Safety Report 4385408-5 (Version None)
Quarter: 2004Q2

REPORT INFORMATION
  Report Type: 
  Country: None (occurrence: None)
  Receive Date: 20040622
  Receipt Date: 20040610
  Transmission Date: 20050107
  Serious: Yes (Hospitalization, Other)
  Sender: FDA-Public Use
  Company Number: 2004039073

PATIENT
  Age: 89 Year
  Sex: Female

DRUGS (2)
  1. NORVASC [Suspect]
     Indication: ILL-DEFINED DISORDER
     Dosage: 5 MG (5 MG , 1 IN 1 D), ORAL
     Route: 048
  2. ACCUPRIL [Suspect]
     Indication: ILL-DEFINED DISORDER
     Dosage: 20 MG (20 MG, 1 IN 1D), ORAL
     Route: 048

REACTIONS (2)
  - BRADYCARDIA [None]
  - CEREBROVASCULAR ACCIDENT [None]
